FAERS Safety Report 21822239 (Version 1)
Quarter: 2023Q1

REPORT INFORMATION
  Report Type: Spontaneous
  Country: CN (occurrence: CN)
  Receive Date: 20230105
  Receipt Date: 20230105
  Transmission Date: 20230417
  Serious: Yes (Hospitalization)
  Sender: FDA-Public Use
  Company Number: CN-HALEON-CNCH2022APC053208

PATIENT

DRUGS (2)
  1. IBUPROFEN [Suspect]
     Active Substance: IBUPROFEN
     Indication: Pyrexia
     Dosage: 0.3 G, BID
     Route: 048
     Dates: start: 20221217, end: 20221218
  2. IBUPROFEN [Suspect]
     Active Substance: IBUPROFEN
     Indication: Back pain
     Dosage: UNK
     Dates: start: 202209

REACTIONS (23)
  - Drug eruption [Recovering/Resolving]
  - Coronavirus infection [Recovering/Resolving]
  - Pyrexia [Recovering/Resolving]
  - Discomfort [Recovering/Resolving]
  - Rash [Recovering/Resolving]
  - Swelling face [Recovering/Resolving]
  - Erythema [Recovering/Resolving]
  - Petechiae [Recovering/Resolving]
  - Ecchymosis [Recovering/Resolving]
  - Drug hypersensitivity [Recovering/Resolving]
  - Oedema peripheral [Recovering/Resolving]
  - Dry skin [Recovering/Resolving]
  - Skin lesion [Recovering/Resolving]
  - Hepatic enzyme increased [Recovering/Resolving]
  - Blood bilirubin increased [Recovering/Resolving]
  - Blood albumin decreased [Recovering/Resolving]
  - Platelet count decreased [Recovering/Resolving]
  - White blood cells urine positive [Recovering/Resolving]
  - Macule [Recovered/Resolved with Sequelae]
  - Pruritus [Recovered/Resolved with Sequelae]
  - Dermatitis allergic [Recovered/Resolved with Sequelae]
  - Disease recurrence [Recovered/Resolved with Sequelae]
  - Product use in unapproved indication [Unknown]

NARRATIVE: CASE EVENT DATE: 20220901
